FAERS Safety Report 5092516-2 (Version None)
Quarter: 2006Q3

REPORT INFORMATION
  Report Type: 
  Country: None (occurrence: None)
  Receive Date: 20060830
  Receipt Date: 20060412
  Transmission Date: 20061208
  Serious: Yes (Death, Other)
  Sender: FDA-Public Use
  Company Number: JP-BRISTOL-MYERS SQUIBB COMPANY-13345236

PATIENT
  Age: 70 Year
  Sex: Male

DRUGS (27)
  1. MAXIPIME [Suspect]
     Indication: PNEUMONIA
     Dosage: CEFEPIME 1.00 G X 2/DAY VIA IV FOR PNEUMONIA ON 04-APR-2006 FOR 1 DAY DURATION.
     Route: 041
     Dates: start: 20060403, end: 20060405
  2. FUNGUARD [Suspect]
     Indication: BRONCHOPULMONARY ASPERGILLOSIS
     Route: 041
     Dates: start: 20060403, end: 20060405
  3. BACTRIM [Concomitant]
     Route: 048
     Dates: start: 20060328, end: 20060409
  4. PAZUCROSS [Concomitant]
     Dates: start: 20060405, end: 20060405
  5. LENDORMIN [Concomitant]
     Route: 048
     Dates: start: 20060328, end: 20060409
  6. PREDONINE [Concomitant]
     Route: 048
     Dates: start: 20060328, end: 20060405
  7. LASIX [Concomitant]
     Route: 048
     Dates: start: 20060328, end: 20060408
  8. VASOLAN [Concomitant]
     Route: 048
     Dates: start: 20060402, end: 20060405
  9. WARFARIN SODIUM [Concomitant]
     Route: 048
     Dates: start: 20060404, end: 20060406
  10. ARTIST [Concomitant]
     Route: 048
     Dates: start: 20060328, end: 20060409
  11. GASTER D [Concomitant]
     Route: 048
     Dates: start: 20060328, end: 20060329
  12. NOVORAPID [Concomitant]
     Dates: start: 20060331, end: 20060331
  13. CIBENOL [Concomitant]
     Route: 048
     Dates: start: 20060328, end: 20060405
  14. OPYSTAN [Concomitant]
     Dates: start: 20060403, end: 20060403
  15. ADONA [Concomitant]
     Dates: start: 20060403, end: 20060403
  16. TRANSAMIN [Concomitant]
     Dates: start: 20060403, end: 20060403
  17. NITOROL [Concomitant]
     Dates: start: 20060404, end: 20060404
  18. HEPARIN SODIUM [Concomitant]
     Dates: start: 20060404, end: 20060409
  19. SOLDACTONE [Concomitant]
     Dates: start: 20060404, end: 20060404
  20. TAKEPRON [Concomitant]
     Route: 048
     Dates: start: 20060328, end: 20060409
  21. DORMICUM [Concomitant]
     Dates: start: 20060405, end: 20060408
  22. EFFORTIL [Concomitant]
     Dates: start: 20060405, end: 20060405
  23. HORIZON [Concomitant]
     Dates: start: 20060405, end: 20060405
  24. PREDOPA [Concomitant]
     Dates: start: 20060405, end: 20060408
  25. DIOVAN [Concomitant]
     Route: 048
     Dates: start: 20060328, end: 20060409
  26. ASPENON [Concomitant]
     Route: 048
     Dates: start: 20060405, end: 20060409
  27. ALDACTONE [Concomitant]
     Route: 048
     Dates: start: 20060405, end: 20060407

REACTIONS (2)
  - DISSEMINATED INTRAVASCULAR COAGULATION [None]
  - HEPATIC FUNCTION ABNORMAL [None]
